FAERS Safety Report 7973407-3 (Version None)
Quarter: 2011Q4

REPORT INFORMATION
  Report Type: 
  Country: None (occurrence: None)
  Receive Date: 20111213
  Receipt Date: 20111206
  Transmission Date: 20120403
  Serious: Yes (Hospitalization)
  Sender: FDA-Public Use
  Company Number: PHEH2011US011033

PATIENT
  Sex: Male

DRUGS (6)
  1. ASPIRIN [Concomitant]
  2. FAMOTIDINE [Concomitant]
  3. EXFORGE HCT [Suspect]
     Dosage: QQQ
  4. TEKTURNA [Suspect]
     Dosage: 300 MG, QD
  5. PLAVIX [Concomitant]
  6. METOPROLOL TARTRATE [Concomitant]

REACTIONS (1)
  - MALAISE [None]
